FAERS Safety Report 26207538 (Version 1)
Quarter: 2025Q4

REPORT INFORMATION
  Report Type: Other
  Country: GB (occurrence: GB)
  Receive Date: 20251229
  Receipt Date: 20251229
  Transmission Date: 20260118
  Serious: Yes (Other)
  Sender: GLENMARK
  Company Number: None

PATIENT
  Age: 70 Year
  Sex: Female
  Weight: 63 kg

DRUGS (8)
  1. EZETIMIBE [Suspect]
     Active Substance: EZETIMIBE
     Indication: Product used for unknown indication
     Dosage: 10 MILLIGRAM, QD
     Route: 065
     Dates: start: 20251013
  2. SENNA [Concomitant]
     Active Substance: SENNOSIDES
     Indication: Ill-defined disorder
     Dosage: UNK, (TAKE 1 OR 2 AT NIGHT - TO BE PURCHASED OTC IN F...)
     Route: 065
     Dates: start: 20251013, end: 20251020
  3. FLUTICASONE PROPIONATE [Concomitant]
     Active Substance: FLUTICASONE PROPIONATE
     Indication: Ill-defined disorder
     Dosage: 2 DOSAGE FORM, OD, (TWO PUFFS ONCE DAILY)
     Route: 065
     Dates: start: 20240602
  4. COCODAMOL [Concomitant]
     Active Substance: ACETAMINOPHEN\CODEINE PHOSPHATE
     Indication: Pain
     Dosage: 2 DOSAGE FORM, QID, (TAKE 2 TABLETS 4 TIMES/DAY AS REQUIRED FOR PAIN...)
     Route: 065
     Dates: start: 20241120
  5. XAILIN NIGHT [Concomitant]
     Indication: Eye disorder
     Dosage: UNK (USE TO THE AFFECTED EYE AT NIGHT)
     Route: 065
     Dates: start: 20250604
  6. LANOLIN\LIGHT MINERAL OIL\PARAFFIN [Concomitant]
     Active Substance: LANOLIN\LIGHT MINERAL OIL\PARAFFIN
     Indication: Ill-defined disorder
     Dosage: UNK (APPLY FREQUENTLY)
     Route: 065
     Dates: start: 20250604
  7. SYSTANE (HYPROMELLOSE 2910 (4000 MPA.S)) [Concomitant]
     Active Substance: HYPROMELLOSE 2910 (4000 MPA.S)
     Indication: Ill-defined disorder
     Dosage: UNK, (USE AS DIRECTED)
     Route: 065
     Dates: start: 20250604
  8. ROSUVASTATIN [Concomitant]
     Active Substance: ROSUVASTATIN
     Indication: Ill-defined disorder
     Dosage: TAKE ONE, QW (TAKE ONE WEEKLY, INCREASE DOSE GRADUALLY EVERY ...)
     Route: 065
     Dates: start: 20250604, end: 20251013

REACTIONS (3)
  - Musculoskeletal pain [Recovered/Resolved]
  - Pain in extremity [Recovered/Resolved]
  - Headache [Recovered/Resolved]
